FAERS Safety Report 9351444 (Version 1)
Quarter: 2013Q2

REPORT INFORMATION
  Report Type: Spontaneous
  Country: US (occurrence: US)
  Receive Date: 20130617
  Receipt Date: 20130617
  Transmission Date: 20140414
  Serious: No
  Sender: FDA-Public Use
  Company Number: US-UPSHER-SMITH LABORATORIES, INC.-13001839

PATIENT
  Age: 76 Year
  Sex: Female

DRUGS (7)
  1. PACERONE (USL) [Suspect]
     Indication: ATRIAL FIBRILLATION
     Dosage: 800 MG, QD
     Route: 048
     Dates: start: 20130501, end: 20130502
  2. PACERONE (USL) [Suspect]
     Dosage: 600 MG, QD
     Route: 048
     Dates: start: 20130503, end: 20130504
  3. PACERONE (USL) [Suspect]
     Dosage: 400 MG, QD
     Route: 048
     Dates: start: 20130505, end: 20130518
  4. PACERONE (USL) [Suspect]
     Dosage: 200 MG, QD
     Route: 048
     Dates: start: 20130519
  5. CLONAZEPAM [Concomitant]
     Indication: INSOMNIA
     Dosage: UNK
  6. PROTONIX                           /01263201/ [Concomitant]
     Dosage: UNK
  7. UNSPECIFIED GLAUCOMA EYE DROPS [Concomitant]
     Indication: GLAUCOMA
     Dosage: UNK

REACTIONS (4)
  - Dyspnoea [Not Recovered/Not Resolved]
  - Asthenia [Not Recovered/Not Resolved]
  - Fatigue [Not Recovered/Not Resolved]
  - Alopecia [Not Recovered/Not Resolved]
